FAERS Safety Report 8516026-2 (Version None)
Quarter: 2012Q3

REPORT INFORMATION
  Report Type: 
  Country: None (occurrence: None)
  Receive Date: 20120717
  Receipt Date: 20120410
  Transmission Date: 20120928
  Serious: No
  Sender: FDA-Public Use
  Company Number: US-NOVEN-12US004447

PATIENT
  Sex: Female

DRUGS (2)
  1. MORPHINE [Concomitant]
     Indication: PAIN
  2. FENTANYL [Suspect]
     Indication: PAIN
     Dosage: 3 X 100UG/HR, EVERY 48 HOURS
     Route: 062
     Dates: start: 20080101, end: 20120327

REACTIONS (5)
  - NAUSEA [None]
  - DRUG WITHDRAWAL SYNDROME [None]
  - PRODUCT QUALITY ISSUE [None]
  - INADEQUATE ANALGESIA [None]
  - PAIN [None]
